FAERS Safety Report 10208670 (Version 1)
Quarter: 2014Q2

REPORT INFORMATION
  Report Type: Spontaneous
  Country: US (occurrence: US)
  Receive Date: 20140530
  Receipt Date: 20140530
  Transmission Date: 20141212
  Serious: No
  Sender: FDA-Public Use
  Company Number: US-PURDUE-USA-2014-0110899

PATIENT
  Age: 60 Year
  Sex: Female

DRUGS (6)
  1. MORPHINE SULFATE (SIMILAR TO NDA 19-516) [Suspect]
     Indication: PAIN
     Dosage: UNKNOWN
  2. MORPHINE SULFATE (SIMILAR TO NDA 19-516) [Suspect]
     Indication: MUSCLE SPASMS
  3. OXYCONTIN (NDA 22-272) [Suspect]
     Indication: MUSCLE SPASMS
     Dosage: UNKNOWN
  4. OXYCONTIN (NDA 22-272) [Suspect]
     Indication: PAIN
  5. FENTANYL [Suspect]
     Indication: MUSCLE SPASMS
     Dosage: UNKNOWN
  6. FENTANYL [Suspect]
     Indication: PAIN

REACTIONS (5)
  - Feeling abnormal [Unknown]
  - Mental impairment [Unknown]
  - Depression [Unknown]
  - Nausea [Unknown]
  - Drug ineffective [Unknown]
